FAERS Safety Report 6943339-8 (Version None)
Quarter: 2010Q3

REPORT INFORMATION
  Report Type: 
  Country: None (occurrence: None)
  Receive Date: 20100826
  Receipt Date: 20100818
  Transmission Date: 20110219
  Serious: Yes (Hospitalization, Other)
  Sender: FDA-Public Use
  Company Number: BR-ABBOTT-10P-020-0665138-00

PATIENT
  Sex: Female
  Weight: 73 kg

DRUGS (1)
  1. HUMIRA [Suspect]
     Indication: ANKYLOSING SPONDYLITIS
     Route: 058
     Dates: start: 20100301

REACTIONS (10)
  - ARTHRALGIA [None]
  - BACK PAIN [None]
  - MOBILITY DECREASED [None]
  - MUSCULOSKELETAL PAIN [None]
  - NECK PAIN [None]
  - OVARIAN CYST [None]
  - PAIN [None]
  - PAIN IN EXTREMITY [None]
  - POLYP [None]
  - WEIGHT INCREASED [None]
